FAERS Safety Report 6956944-X (Version None)
Quarter: 2010Q3

REPORT INFORMATION
  Report Type: 
  Country: None (occurrence: None)
  Receive Date: 20100826
  Receipt Date: 20100814
  Transmission Date: 20110219
  Serious: Yes (Disabling, Other)
  Sender: FDA-Public Use
  Company Number: ALA_00657_2010

PATIENT
  Sex: Male
  Weight: 74 kg

DRUGS (3)
  1. ANADROL [Suspect]
     Indication: PRODUCT USED FOR UNKNOWN INDICATION
     Dosage: (DF ORAL)
     Route: 048
     Dates: start: 19990101
  2. ANADROL [Suspect]
     Indication: RED BLOOD CELL COUNT ABNORMAL
     Dosage: (DF ORAL)
     Route: 048
     Dates: start: 20010101
  3. UNSPECIFIED HIV MEDICATIONS [Concomitant]

REACTIONS (4)
  - ACNE [None]
  - CARDIAC FAILURE CONGESTIVE [None]
  - DIABETES MELLITUS [None]
  - NEOPLASM MALIGNANT [None]
